FAERS Safety Report 24157115 (Version 2)
Quarter: 2025Q4

REPORT INFORMATION
  Report Type: Spontaneous
  Country: US (occurrence: US)
  Receive Date: 20240731
  Receipt Date: 20251020
  Transmission Date: 20260117
  Serious: No
  Sender: ROCHE
  Company Number: US-ROCHE-10000036411

PATIENT
  Age: 45 Year
  Sex: Male

DRUGS (1)
  1. HEMLIBRA [Suspect]
     Active Substance: EMICIZUMAB-KXWH
     Indication: Product used for unknown indication
     Route: 065

REACTIONS (4)
  - Haemorrhage [Unknown]
  - Joint swelling [Unknown]
  - Contusion [Unknown]
  - Arthropathy [Unknown]

NARRATIVE: CASE EVENT DATE: 20251003
